FAERS Safety Report 10642537 (Version 2)
Quarter: 2014Q4

REPORT INFORMATION
  Report Type: Spontaneous
  Country: US (occurrence: None)
  Receive Date: 20141208
  Receipt Date: 20141217
  Transmission Date: 20150529
  Serious: Yes (Other)
  Sender: FDA-Public Use
  Company Number: US-H14001-14-01731

PATIENT
  Age: 47 Year
  Sex: Male
  Weight: 85.73 kg

DRUGS (3)
  1. NIFEDIPINE. [Concomitant]
     Active Substance: NIFEDIPINE
  2. BENAZEPRIL [Concomitant]
     Active Substance: BENAZEPRIL\BENAZEPRIL HYDROCHLORIDE
  3. TESTOSTERONE CYPIONATE. [Suspect]
     Active Substance: TESTOSTERONE CYPIONATE
     Indication: BLOOD TESTOSTERONE DECREASED
     Route: 030

REACTIONS (7)
  - Injection site warmth [None]
  - Product deposit [None]
  - Injection site pain [None]
  - Injection site erythema [None]
  - Injection site swelling [None]
  - Infection [None]
  - Injection site inflammation [None]

NARRATIVE: CASE EVENT DATE: 201411
